FAERS Safety Report 13174909 (Version 1)
Quarter: 2017Q1

REPORT INFORMATION
  Report Type: Spontaneous
  Country: US (occurrence: US)
  Receive Date: 20170201
  Receipt Date: 20170201
  Transmission Date: 20170428
  Serious: No
  Sender: FDA-Public Use
  Company Number: US-ABBVIE-16K-163-1817885-00

PATIENT
  Age: 80 Year
  Sex: Female

DRUGS (1)
  1. HUMIRA [Suspect]
     Active Substance: ADALIMUMAB
     Indication: RHEUMATOID ARTHRITIS
     Route: 058

REACTIONS (5)
  - Injection site injury [Recovered/Resolved]
  - Injection site haemorrhage [Recovered/Resolved]
  - Frequent bowel movements [Not Recovered/Not Resolved]
  - Arthropod bite [Recovered/Resolved]
  - Rocky mountain spotted fever [Recovered/Resolved]

NARRATIVE: CASE EVENT DATE: 2015
